FAERS Safety Report 25917318 (Version 1)
Quarter: 2025Q4

REPORT INFORMATION
  Report Type: Spontaneous
  Country: EU (occurrence: EU)
  Receive Date: 20251014
  Receipt Date: 20251014
  Transmission Date: 20260118
  Serious: Yes (Other)
  Sender: AUROBINDO
  Company Number: EU-BIOGARAN-B25001708

PATIENT
  Age: 47 Year
  Sex: Female

DRUGS (4)
  1. TRAMADOL [Suspect]
     Active Substance: TRAMADOL
     Indication: Pain
     Dosage: UNK
     Route: 065
  2. PALIPERIDONE [Suspect]
     Active Substance: PALIPERIDONE
     Indication: Schizoaffective disorder
     Dosage: 1 DOSAGE FORM (1 INJECTION EVERY 28 DAYS)
     Route: 065
     Dates: start: 2019
  3. PALIPERIDONE [Suspect]
     Active Substance: PALIPERIDONE
     Indication: Schizoaffective disorder
     Dosage: UNK (ONCE)
     Route: 065
     Dates: start: 20250917, end: 20250917
  4. OXAZEPAM [Concomitant]
     Active Substance: OXAZEPAM
     Indication: Product used for unknown indication
     Dosage: UNK
     Route: 065

REACTIONS (6)
  - Cerebral haemorrhage [Unknown]
  - Cerebrovascular accident [Unknown]
  - Pain [Unknown]
  - Hypersomnia [Unknown]
  - Wrong technique in product usage process [Unknown]
  - Medication error [Unknown]

NARRATIVE: CASE EVENT DATE: 20240101
